FAERS Safety Report 8116739-0 (Version None)
Quarter: 2011Q4

REPORT INFORMATION
  Report Type: 
  Country: None (occurrence: None)
  Receive Date: 20111227
  Receipt Date: 20110908
  Transmission Date: 20120403
  Serious: No
  Sender: FDA-Public Use
  Company Number: PHEH2011US03657

PATIENT
  Age: 35 Year
  Sex: Female
  Weight: 57.6 kg

DRUGS (7)
  1. MULTIVITAMIN ^LAPPE^ (VITAMINS NOS) CAPSULE [Concomitant]
  2. KLONOPIN [Concomitant]
  3. RITALIN [Concomitant]
  4. GILENYA [Suspect]
     Indication: MULTIPLE SCLEROSIS
     Dosage: 0.5 MG, DAILY, ORAL
     Route: 048
     Dates: start: 20110829
  5. PROVIGIL [Concomitant]
  6. VITAMIN B12 (CYANOCOBALAMIN) INJECTION [Concomitant]
  7. PERCOCET [Concomitant]

REACTIONS (5)
  - VOMITING [None]
  - DECREASED APPETITE [None]
  - BACK PAIN [None]
  - NAUSEA [None]
  - HEADACHE [None]
